FAERS Safety Report 7315718-0 (Version None)
Quarter: 2011Q1

REPORT INFORMATION
  Report Type: 
  Country: None (occurrence: None)
  Receive Date: 20110225
  Receipt Date: 20100517
  Transmission Date: 20110831
  Serious: Yes (Hospitalization, Other)
  Sender: FDA-Public Use
  Company Number: US-BAYER-200938979NA

PATIENT
  Sex: Female
  Weight: 136.36 kg

DRUGS (8)
  1. CITALOPRAM HYDROBROMIDE [Concomitant]
     Dosage: UNK UNK, QD
     Dates: start: 20090101
  2. OCELLA [Suspect]
     Indication: PREMENSTRUAL SYNDROME
     Route: 048
     Dates: start: 20081101, end: 20090101
  3. ANTI-ASTHMATICS [Concomitant]
  4. YASMIN [Suspect]
     Indication: PREMENSTRUAL SYNDROME
     Route: 048
     Dates: start: 20081101, end: 20090101
  5. ANTIBIOTICS [Concomitant]
  6. ANTIDEPRESSANTS [Concomitant]
  7. IBUPROFEN [Concomitant]
     Dosage: 2 TO 3 TIMES PER MONTH
  8. YAZ [Suspect]
     Indication: PRODUCT USED FOR UNKNOWN INDICATION
     Route: 048
     Dates: start: 20081101, end: 20090126

REACTIONS (3)
  - DEEP VEIN THROMBOSIS [None]
  - PAIN IN EXTREMITY [None]
  - OEDEMA PERIPHERAL [None]
